FAERS Safety Report 4323668-7 (Version None)
Quarter: 2004Q1

REPORT INFORMATION
  Report Type: 
  Country: None (occurrence: None)
  Receive Date: 20040325
  Receipt Date: 20040325
  Transmission Date: 20041129
  Serious: Yes (Hospitalization)
  Sender: FDA-Public Use
  Company Number: None

PATIENT
  Sex: Female
  Weight: 58.9676 kg

DRUGS (2)
  1. ZOLOFT [Suspect]
     Indication: CHRONIC FATIGUE SYNDROME
     Dosage: 50 MG 1X DAILY, ORAL, 25 MG TID Q ORAL
     Route: 048
     Dates: start: 20031001, end: 20040314
  2. ZOLOFT [Suspect]
     Indication: CONVULSION
     Dosage: 50 MG 1X DAILY, ORAL, 25 MG TID Q ORAL
     Route: 048
     Dates: start: 20031001, end: 20040314

REACTIONS (1)
  - CONVULSION [None]
